FAERS Safety Report 7394424-0 (Version None)
Quarter: 2011Q2

REPORT INFORMATION
  Report Type: 
  Country: None (occurrence: None)
  Receive Date: 20110405
  Receipt Date: 20110322
  Transmission Date: 20111010
  Serious: Yes (Hospitalization)
  Sender: FDA-Public Use
  Company Number: PHHY2011BR24360

PATIENT
  Age: 76 Year
  Sex: Male

DRUGS (2)
  1. FORASEQ [Suspect]
  2. ONBREZ [Suspect]

REACTIONS (3)
  - PSEUDOMONAS INFECTION [None]
  - DYSPNOEA [None]
  - ASTHENIA [None]
